FAERS Safety Report 20445046 (Version 1)
Quarter: 2022Q1

REPORT INFORMATION
  Report Type: Spontaneous
  Country: US (occurrence: None)
  Receive Date: 20220208
  Receipt Date: 20220208
  Transmission Date: 20220423
  Serious: Yes (Hospitalization, Disabling)
  Sender: FDA-Public Use
  Company Number: None

PATIENT
  Age: 66 Year
  Sex: Female

DRUGS (10)
  1. CAPECITABINE [Suspect]
     Active Substance: CAPECITABINE
     Indication: Breast cancer
     Dosage: FREQUENCY : TWICE A DAY;?
     Route: 048
     Dates: start: 202012
  2. IMODIUM [Concomitant]
  3. THIAMINE HYDROCHLORIDE [Concomitant]
     Active Substance: THIAMINE HYDROCHLORIDE
  4. HALOPERIDOL [Concomitant]
  5. LEVETIRACETAM [Concomitant]
  6. MAG OX [Concomitant]
  7. XGEVA [Concomitant]
  8. CYMBALTA [Concomitant]
  9. IBUPROFEN [Concomitant]
  10. PANTOPRAZOLE [Concomitant]

REACTIONS (5)
  - Seizure [None]
  - Nausea [None]
  - Vomiting [None]
  - Hyponatraemia [None]
  - Hypophagia [None]
